FAERS Safety Report 18530338 (Version 1)
Quarter: 2020Q4

REPORT INFORMATION
  Report Type: Report from Study
  Country: None (occurrence: IT)
  Receive Date: 20201121
  Receipt Date: 20201121
  Transmission Date: 20210114
  Serious: Yes (Death)
  Sender: FDA-Public Use
  Company Number: IT-ABBVIE-20K-083-3661039-00

PATIENT
  Age: 74 Year
  Sex: Male

DRUGS (2)
  1. DUODOPA [Suspect]
     Active Substance: CARBIDOPA\LEVODOPA
     Indication: PARKINSON^S DISEASE
     Dosage: TOTAL DAILY DOSE (MG): 1644; PUMP SETTING: MD: 7+3; CR: 4,2; ED: 4
     Route: 050
     Dates: start: 20150407
  2. DUODOPA [Suspect]
     Active Substance: CARBIDOPA\LEVODOPA

REACTIONS (1)
  - General physical health deterioration [Fatal]

NARRATIVE: CASE EVENT DATE: 202011
